FAERS Safety Report 6464610-2 (Version None)
Quarter: 2009Q4

REPORT INFORMATION
  Report Type: 
  Country: None (occurrence: None)
  Receive Date: 20091201
  Receipt Date: 20091123
  Transmission Date: 20100525
  Serious: Yes (Other)
  Sender: FDA-Public Use
  Company Number: US-MERCK-0911USA04343

PATIENT
  Sex: Female

DRUGS (2)
  1. VYTORIN [Suspect]
     Indication: BLOOD CHOLESTEROL INCREASED
     Route: 048
  2. PLAVIX [Concomitant]
     Route: 065

REACTIONS (3)
  - BLISTER [None]
  - NEOPLASM MALIGNANT [None]
  - RASH [None]
